FAERS Safety Report 7719303-8 (Version None)
Quarter: 2011Q3

REPORT INFORMATION
  Report Type: 
  Country: None (occurrence: None)
  Receive Date: 20110830
  Receipt Date: 20110818
  Transmission Date: 20111222
  Serious: Yes (Hospitalization)
  Sender: FDA-Public Use
  Company Number: US-JNJFOC-20100210331

PATIENT
  Age: 8 Month
  Sex: Female
  Weight: 8 kg

DRUGS (4)
  1. OMNICEF [Suspect]
     Indication: EAR INFECTION
     Dates: start: 20050102
  2. CHILDREN'S TYLENOL SUSPENSION [Suspect]
     Indication: PAIN
     Route: 048
     Dates: start: 20050102, end: 20050105
  3. CHILDREN'S TYLENOL SUSPENSION [Suspect]
     Route: 048
  4. CHILDREN'S IBUPROFEN [Suspect]
     Indication: PAIN
     Dates: start: 20050102, end: 20050102

REACTIONS (6)
  - LIVER FUNCTION TEST ABNORMAL [None]
  - DECREASED APPETITE [None]
  - PROTHROMBIN TIME PROLONGED [None]
  - ACCIDENTAL OVERDOSE [None]
  - TACHYCARDIA [None]
  - DEHYDRATION [None]
